FAERS Safety Report 7484921-1 (Version None)
Quarter: 2011Q2

REPORT INFORMATION
  Report Type: 
  Country: None (occurrence: None)
  Receive Date: 20110517
  Receipt Date: 20110510
  Transmission Date: 20111010
  Serious: Yes (Hospitalization)
  Sender: FDA-Public Use
  Company Number: B0718850A

PATIENT
  Sex: Female

DRUGS (4)
  1. LAMICTAL [Suspect]
     Indication: EPILEPSY
     Dosage: 75MG PER DAY
     Route: 048
  2. HALCION [Concomitant]
     Indication: INSOMNIA
     Dosage: 3.5MG PER DAY
     Route: 048
  3. MEILAX [Concomitant]
     Indication: ANXIETY
     Route: 048
  4. SILECE [Concomitant]
     Indication: INSOMNIA
     Dosage: 40MG PER DAY
     Route: 048

REACTIONS (3)
  - COMA [None]
  - SUICIDE ATTEMPT [None]
  - INTENTIONAL OVERDOSE [None]
